FAERS Safety Report 19159523 (Version 1)
Quarter: 2021Q2

REPORT INFORMATION
  Report Type: Spontaneous
  Country: CA (occurrence: CA)
  Receive Date: 20210420
  Receipt Date: 20210420
  Transmission Date: 20210717
  Serious: Yes (Life-Threatening, Disabling, Other)
  Sender: FDA-Public Use
  Company Number: CA-ASTRAZENECA-2021A324867

PATIENT
  Age: 65 Year
  Sex: Female
  Weight: 81.6 kg

DRUGS (1)
  1. APO?OMEPRAZOLE [Suspect]
     Active Substance: OMEPRAZOLE
     Indication: GASTROOESOPHAGEAL REFLUX DISEASE
     Route: 048

REACTIONS (5)
  - Non-cardiac chest pain [Recovered/Resolved]
  - Product substitution issue [Recovered/Resolved]
  - Impaired work ability [Recovered/Resolved]
  - Drug ineffective [Recovered/Resolved]
  - Therapeutic response changed [Recovered/Resolved]
